FAERS Safety Report 7930887-7 (Version None)
Quarter: 2011Q4

REPORT INFORMATION
  Report Type: 
  Country: None (occurrence: None)
  Receive Date: 20111117
  Receipt Date: 20111117
  Transmission Date: 20120403
  Serious: Yes (Hospitalization)
  Sender: FDA-Public Use
  Company Number: None

PATIENT
  Sex: Female
  Weight: 51 kg

DRUGS (3)
  1. TAXOL [Suspect]
     Dosage: 226 MG
     Dates: end: 20111018
  2. BEVACIZUMAB (RHUMAB VEGF) [Suspect]
     Dosage: 683 MG
     Dates: end: 20111018
  3. CARBOPLATIN [Suspect]
     Dosage: 455 MG
     Dates: end: 20111018

REACTIONS (6)
  - HYPOTENSION [None]
  - ESCHERICHIA TEST POSITIVE [None]
  - ASTHENIA [None]
  - SEPSIS [None]
  - BACK PAIN [None]
  - DECREASED APPETITE [None]
